FAERS Safety Report 18282871 (Version 3)
Quarter: 2020Q4

REPORT INFORMATION
  Report Type: Report from Study
  Country: US (occurrence: US)
  Receive Date: 20200918
  Receipt Date: 20201109
  Transmission Date: 20210113
  Serious: Yes (Other)
  Sender: FDA-Public Use
  Company Number: US-PFIZER INC-2020078089

PATIENT
  Age: 64 Year
  Sex: Male

DRUGS (2)
  1. SUTENT [Suspect]
     Active Substance: SUNITINIB MALATE
     Indication: RENAL CANCER
     Dosage: 50 MG, CYCLIC (4 WEEKS ON, 2 WEEKS OFF)
     Route: 048
     Dates: start: 20200210, end: 202003
  2. SUTENT [Suspect]
     Active Substance: SUNITINIB MALATE
     Dosage: 50 MG, CYCLIC (2 WEEKS ON, 1 WEEK OFF)
     Route: 048
     Dates: start: 20200329

REACTIONS (23)
  - Product dose omission issue [Unknown]
  - Contusion [Unknown]
  - Tongue disorder [Unknown]
  - Gastrointestinal sounds abnormal [Unknown]
  - Weight decreased [Recovering/Resolving]
  - Hyperkeratosis [Unknown]
  - Blood pressure increased [Unknown]
  - Decreased appetite [Recovering/Resolving]
  - Headache [Not Recovered/Not Resolved]
  - Pain in extremity [Unknown]
  - Diarrhoea [Unknown]
  - Skin disorder [Unknown]
  - Blood pressure abnormal [Unknown]
  - Oral pain [Unknown]
  - Gingival discomfort [Unknown]
  - Fatigue [Unknown]
  - Blister [Recovering/Resolving]
  - Blood iron decreased [Unknown]
  - Appetite disorder [Recovering/Resolving]
  - Blood count abnormal [Unknown]
  - Taste disorder [Unknown]
  - Hypersomnia [Unknown]
  - Dry skin [Not Recovered/Not Resolved]

NARRATIVE: CASE EVENT DATE: 2020
